FAERS Safety Report 7996099-6 (Version None)
Quarter: 2011Q4

REPORT INFORMATION
  Report Type: 
  Country: None (occurrence: None)
  Receive Date: 20111220
  Receipt Date: 20111213
  Transmission Date: 20120403
  Serious: Yes (Hospitalization)
  Sender: FDA-Public Use
  Company Number: PHHO2011FR020811

PATIENT
  Sex: Male

DRUGS (3)
  1. MYCOPHENOLATE MOFETIL (CELLCEPT) [Suspect]
     Indication: RENAL TRANSPLANT
     Route: 048
  2. PREDNISONE TAB [Suspect]
     Indication: RENAL TRANSPLANT
  3. NEORAL [Suspect]
     Indication: RENAL TRANSPLANT
     Dosage: UNK
     Route: 048

REACTIONS (3)
  - PROTEINURIA [None]
  - CONCOMITANT DISEASE PROGRESSION [None]
  - FOCAL SEGMENTAL GLOMERULOSCLEROSIS [None]
